FAERS Safety Report 9778806 (Version 1)
Quarter: 2013Q4

REPORT INFORMATION
  Report Type: Spontaneous
  Country: US (occurrence: None)
  Receive Date: 20131220
  Receipt Date: 20131220
  Transmission Date: 20140711
  Serious: No
  Sender: FDA-Public Use
  Company Number: None

PATIENT
  Age: 51 Year
  Sex: Female
  Weight: 112.95 kg

DRUGS (11)
  1. FASLODEX [Suspect]
     Indication: BREAST CANCER STAGE IV
     Route: 030
     Dates: start: 20091030, end: 20131210
  2. AMLODIPINE [Concomitant]
  3. CITALOPRAM [Concomitant]
  4. CLINDAMYCIN [Concomitant]
  5. LEVOTHYROXINE [Concomitant]
  6. LISINOPRIL [Concomitant]
  7. MORPHINE IMMEDIATE RELEASE TABLETS [Concomitant]
  8. ESOMEPRAZOLE [Concomitant]
  9. DOCUSATE SODIUM\SENNOSIDES [Suspect]
  10. METOPROLOL SUCCINATE [Concomitant]
  11. ONDANSETRON [Concomitant]

REACTIONS (2)
  - Cough [None]
  - Vomiting [None]
